FAERS Safety Report 23985281 (Version 1)
Quarter: 2024Q2

REPORT INFORMATION
  Report Type: Spontaneous
  Country: FR (occurrence: FR)
  Receive Date: 20240618
  Receipt Date: 20240618
  Transmission Date: 20240715
  Serious: Yes (Other)
  Sender: FDA-Public Use
  Company Number: FR-MLMSERVICE-20240530-PI083224-00306-1

PATIENT
  Age: 43 Year
  Sex: Male

DRUGS (3)
  1. MYCOPHENOLIC ACID [Suspect]
     Active Substance: MYCOPHENOLIC ACID
     Indication: Immunosuppressant drug therapy
     Dates: start: 202307
  2. TACROLIMUS [Suspect]
     Active Substance: TACROLIMUS
     Indication: Immunosuppressant drug therapy
     Dosage: GOAL TROUGH OF 10-12 NG/ML
     Dates: start: 202307
  3. PREDNISONE [Suspect]
     Active Substance: PREDNISONE
     Indication: Immunosuppressant drug therapy
     Dates: start: 202307

REACTIONS (2)
  - Bronchitis [Recovering/Resolving]
  - Bordetella infection [Recovering/Resolving]

NARRATIVE: CASE EVENT DATE: 20230801
